FAERS Safety Report 24080561 (Version 1)
Quarter: 2024Q3

REPORT INFORMATION
  Report Type: Spontaneous
  Country: US (occurrence: None)
  Receive Date: 20240711
  Receipt Date: 20240711
  Transmission Date: 20241016
  Serious: Yes (Hospitalization)
  Sender: Public
  Company Number: None

PATIENT
  Age: 50 Year
  Sex: Female

DRUGS (22)
  1. TECFIDERA [Suspect]
     Active Substance: DIMETHYL FUMARATE
     Indication: Multiple sclerosis
     Dosage: 240 MG TWICE A DAY ORAL
     Route: 048
     Dates: start: 20200905
  2. STRATTERA [Concomitant]
  3. CALCIUM [Concomitant]
     Active Substance: CALCIUM
  4. MULTIVITAMIN ADULT 50+ TABLETS [Concomitant]
  5. VITAMIN C [Concomitant]
     Active Substance: ASCORBIC ACID
  6. ALENDRONATE [Concomitant]
  7. Bupropion SR [Concomitant]
  8. CLONAZEPAM [Concomitant]
     Active Substance: CLONAZEPAM
  9. ADDERALL [Concomitant]
  10. DULOXETINE [Concomitant]
     Active Substance: DULOXETINE
  11. ELETRIPTAN [Concomitant]
  12. FAMOTIDINE [Concomitant]
  13. FOLIC ACID [Concomitant]
  14. GABAPENTIN [Concomitant]
  15. HYDROXYCHLOROQUINE [Concomitant]
     Active Substance: HYDROXYCHLOROQUINE
  16. Lamotrigine ER [Concomitant]
  17. LEVOTHYROXINE [Concomitant]
  18. METOCLOPRAMIDE [Concomitant]
  19. METOPROLOL TARTRATE [Concomitant]
  20. MODAFINIL [Concomitant]
     Active Substance: MODAFINIL
  21. OXYBUTYNIN [Concomitant]
  22. Vitamin D [Concomitant]

REACTIONS (4)
  - Fall [None]
  - Lower limb fracture [None]
  - Therapy interrupted [None]
  - Product availability issue [None]

NARRATIVE: CASE EVENT DATE: 20240622
